FAERS Safety Report 19673159 (Version 2)
Quarter: 2021Q3

REPORT INFORMATION
  Report Type: Report from Study
  Country: GB (occurrence: GB)
  Receive Date: 20210809
  Receipt Date: 20210825
  Transmission Date: 20211014
  Serious: Yes (Hospitalization, Other)
  Sender: FDA-Public Use
  Company Number: GB-ACCORD-234670

PATIENT
  Age: 67 Year
  Sex: Female
  Weight: 65.9 kg

DRUGS (33)
  1. CHLORAL HYDRATE [Concomitant]
     Active Substance: CHLORAL HYDRATE
     Route: 065
     Dates: start: 20210522
  2. ONDANSETRON [Concomitant]
     Active Substance: ONDANSETRON
     Route: 065
     Dates: start: 20210610, end: 20210610
  3. THIAMINE. [Concomitant]
     Active Substance: THIAMINE
     Dosage: PREVENT OR TREAT VITAMIN B DEFICIENCY.
     Route: 065
     Dates: start: 20210624, end: 20210628
  4. AMOXICILLIN. [Concomitant]
     Active Substance: AMOXICILLIN
     Route: 065
     Dates: start: 20210427
  5. METOCLOPRAMIDE. [Concomitant]
     Active Substance: METOCLOPRAMIDE
     Dosage: NAUSEA AND VOMITING. 10 MG,
     Route: 065
     Dates: start: 20210620
  6. PARACETAMOL [Concomitant]
     Active Substance: ACETAMINOPHEN
     Dosage: 1G, WHEN REQUIRED WITH A MINIMUM?DOSAGE INTERVAL OF 4 HOURS AND A?MAXIMUM OF 4 DOSES PER 24 HOURS
     Route: 065
     Dates: start: 20210522
  7. DEXAMETHASONE. [Concomitant]
     Active Substance: DEXAMETHASONE
     Route: 065
     Dates: start: 20210610, end: 20210610
  8. ETOPOSIDE. [Suspect]
     Active Substance: ETOPOSIDE
     Indication: PRODUCT USED FOR UNKNOWN INDICATION
     Route: 048
     Dates: start: 20210423
  9. ATEZOLIZUMAB. [Suspect]
     Active Substance: ATEZOLIZUMAB
     Indication: SMALL CELL LUNG CANCER EXTENSIVE STAGE
     Dosage: DATE OF MOST RECENT DOSE OF STUDY DRUG PRIOR TO AE:13/MAY/2021
     Route: 041
     Dates: start: 20210401
  10. SENNOSIDE A+B [Concomitant]
     Active Substance: SENNOSIDES A AND B
     Route: 065
     Dates: start: 20210522
  11. DEXAMETHASONE. [Concomitant]
     Active Substance: DEXAMETHASONE
     Route: 065
     Dates: start: 20210422, end: 20210422
  12. DOCUSATE [Concomitant]
     Active Substance: DOCUSATE
     Route: 065
     Dates: start: 20210620
  13. NICOTINE. [Concomitant]
     Active Substance: NICOTINE
     Dosage: 1MG ORAL SPRAY MANAGEMENT OF NICOTINE WITHDRAWAL.
     Route: 048
     Dates: start: 20210522
  14. ONDANSETRON [Concomitant]
     Active Substance: ONDANSETRON
     Route: 065
     Dates: start: 20210513, end: 20210513
  15. MOVICOL [Concomitant]
     Active Substance: POLYETHYLENE GLYCOL 3350\POTASSIUM CHLORIDE\SODIUM BICARBONATE\SODIUM CHLORIDE
     Route: 065
     Dates: start: 20210427
  16. BISACODYL. [Concomitant]
     Active Substance: BISACODYL
     Dosage: 2 TABLETS BD
     Route: 065
     Dates: start: 20210426
  17. RAMIPRIL. [Concomitant]
     Active Substance: RAMIPRIL
     Route: 065
     Dates: start: 2011
  18. SANDO?K [Concomitant]
     Route: 065
     Dates: start: 20210623, end: 20210626
  19. AMLODIPINE [Concomitant]
     Active Substance: AMLODIPINE BESYLATE
     Route: 065
     Dates: start: 2011
  20. AMOXICILLIN SODIUM/CLAVULANATE POTASSIUM [Concomitant]
     Active Substance: AMOXICILLIN\CLAVULANATE POTASSIUM
     Dosage: AMOXICILLIN 500MG +POTASSIUM?CLAVUNALATE 125MG TABLET
     Route: 065
     Dates: start: 20210522, end: 20210531
  21. BISACODYL. [Concomitant]
     Active Substance: BISACODYL
     Route: 065
     Dates: start: 20210426
  22. BISOPROLOL [Concomitant]
     Active Substance: BISOPROLOL
     Route: 065
     Dates: start: 2019
  23. FILGRASTIM [Concomitant]
     Active Substance: FILGRASTIM
     Dosage: 30 MILLION UNITS/ 0.5ML?INJECTION
     Route: 065
     Dates: start: 20210625, end: 20210628
  24. PHOSPHATE SANDOZ [Concomitant]
     Active Substance: SODIUM PHOSPHATE, MONOBASIC, ANHYDROUS
     Dosage: EFFERVESCENT
     Route: 065
     Dates: start: 20210527, end: 20210529
  25. ACIDEX [Concomitant]
     Indication: DYSPEPSIA
     Dosage: PEPTAC ANISEED ORAL LIQUID SUGAR?FREE, NOCTE (10 ? 20) ML NOCTE
     Dates: start: 20210620
  26. LAXIDO [Concomitant]
     Active Substance: POLYETHYLENE GLYCOL 3350\POTASSIUM CHLORIDE\SODIUM BICARBONATE\SODIUM CHLORIDE
  27. PARACETAMOL [Concomitant]
     Active Substance: ACETAMINOPHEN
     Route: 065
     Dates: start: 20210620
  28. CARBOPLATIN. [Suspect]
     Active Substance: CARBOPLATIN
     Indication: SMALL CELL LUNG CANCER EXTENSIVE STAGE
     Route: 065
     Dates: start: 20210401
  29. GLYCEROL [Concomitant]
     Active Substance: GLYCERIN
     Route: 065
     Dates: start: 20210430
  30. NICOTINE. [Concomitant]
     Active Substance: NICOTINE
     Dosage: 21MG/24HOUR TRANSDERMAL PATCH
     Route: 062
     Dates: start: 20210522
  31. SENNA ALEXANDRINA [Concomitant]
     Active Substance: SENNA LEAF
     Dates: start: 202103, end: 20210419
  32. ETOPOSIDE. [Suspect]
     Active Substance: ETOPOSIDE
     Indication: SMALL CELL LUNG CANCER EXTENSIVE STAGE
     Route: 065
     Dates: start: 20210401
  33. DEXAMETHASONE. [Concomitant]
     Active Substance: DEXAMETHASONE
     Route: 065
     Dates: start: 20210513, end: 20210513

REACTIONS (8)
  - Abdominal pain [Recovered/Resolved]
  - Endometrial cancer [Not Recovered/Not Resolved]
  - Constipation [Unknown]
  - Back pain [Not Recovered/Not Resolved]
  - Immune-mediated enterocolitis [Recovered/Resolved]
  - Asthenia [Recovered/Resolved]
  - Neutropenic sepsis [Recovered/Resolved]
  - Thrombocytopenia [Recovered/Resolved]

NARRATIVE: CASE EVENT DATE: 20210404
